FAERS Safety Report 24738949 (Version 2)
Quarter: 2024Q4

REPORT INFORMATION
  Report Type: Spontaneous
  Country: IT (occurrence: IT)
  Receive Date: 20241216
  Receipt Date: 20241230
  Transmission Date: 20250115
  Serious: Yes (Death, Hospitalization, Other)
  Sender: DAIICHI
  Company Number: None

PATIENT
  Age: 96 Year
  Sex: Female
  Weight: 45 kg

DRUGS (4)
  1. EDOXABAN TOSYLATE [Suspect]
     Active Substance: EDOXABAN TOSYLATE
     Indication: Atrial fibrillation
     Dosage: 30 MG, QD (30 MG PER DAY)
     Route: 048
     Dates: start: 202010, end: 20240917
  2. OMEPRAZOLE [Concomitant]
     Active Substance: OMEPRAZOLE
     Indication: Product used for unknown indication
     Dosage: 20 MG
     Route: 048
  3. HYDROCHLOROTHIAZIDE\ZOFENOPRIL CALCIUM [Concomitant]
     Active Substance: HYDROCHLOROTHIAZIDE\ZOFENOPRIL CALCIUM
     Indication: Product used for unknown indication
     Dosage: UNK UNK, QD (30MG+12.5MG 1/2 CPR/DAY)
     Route: 048
  4. BISOPROLOL FUMARATE [Concomitant]
     Active Substance: BISOPROLOL FUMARATE
     Indication: Product used for unknown indication
     Dosage: 2.5 MG, QD (2.5 MG/DAY)
     Route: 048

REACTIONS (3)
  - Renal failure [Fatal]
  - Hepatic failure [Fatal]
  - Anaemia [Fatal]

NARRATIVE: CASE EVENT DATE: 20240901
